FAERS Safety Report 25713310 (Version 1)
Quarter: 2025Q3

REPORT INFORMATION
  Report Type: Spontaneous
  Country: EU (occurrence: EU)
  Receive Date: 20250822
  Receipt Date: 20250822
  Transmission Date: 20251020
  Serious: Yes (Hospitalization)
  Sender: TEVA
  Company Number: None

PATIENT
  Age: 50 Year
  Sex: Female
  Weight: 60 kg

DRUGS (2)
  1. DULOXETINE [Suspect]
     Active Substance: DULOXETINE
     Indication: Neuropathy peripheral
     Dosage: DULOXETINE 60 MG: 1 CAPSULE IN THE EVENING?DULOXETINE 30 MG: 1 CAPSULE IN THE MORNING: DULOXETINE...
     Route: 048
     Dates: start: 2024, end: 202507
  2. AMANTADINE HYDROCHLORIDE [Suspect]
     Active Substance: AMANTADINE HYDROCHLORIDE
     Indication: Parkinson^s disease
     Dosage: OCTOBER 2024: DOSAGE INCREASE FROM 200 TO 300 MG/DAY
     Route: 048
     Dates: start: 202410, end: 202507

REACTIONS (2)
  - Serotonin syndrome [Recovering/Resolving]
  - Incorrect dosage administered [Recovered/Resolved]

NARRATIVE: CASE EVENT DATE: 20250101
